FAERS Safety Report 13950904 (Version 1)
Quarter: 2017Q3

REPORT INFORMATION
  Report Type: Spontaneous
  Country: US (occurrence: US)
  Receive Date: 20170908
  Receipt Date: 20170908
  Transmission Date: 20171128
  Serious: Yes (Other)
  Sender: FDA-Public Use
  Company Number: US-ASTRAZENECA-2016SE41505

PATIENT
  Age: 48 Year
  Sex: Female

DRUGS (1)
  1. ZOMIG [Suspect]
     Active Substance: ZOLMITRIPTAN
     Indication: MIGRAINE
     Dosage: 2.5MG UNKNOWN
     Route: 048
     Dates: start: 2007

REACTIONS (3)
  - Fall [Unknown]
  - Craniocerebral injury [Unknown]
  - Migraine [Unknown]

NARRATIVE: CASE EVENT DATE: 2012
